FAERS Safety Report 7538058-3 (Version None)
Quarter: 2011Q2

REPORT INFORMATION
  Report Type: 
  Country: None (occurrence: None)
  Receive Date: 20110609
  Receipt Date: 20110603
  Transmission Date: 20111010
  Serious: Yes (Life-Threatening, Hospitalization, Other)
  Sender: FDA-Public Use
  Company Number: JP-PFIZER INC-2011100501

PATIENT
  Age: 75 Year
  Sex: Female
  Weight: 54 kg

DRUGS (8)
  1. LASIX [Concomitant]
     Dosage: 1 DF, 2X/DAY
     Dates: start: 20110402
  2. VITAMEDIN INTRAVENOUS [Concomitant]
     Dosage: 1 DF, 1X/DAY
     Route: 042
     Dates: start: 20110408
  3. ZYVOX [Suspect]
     Indication: ENTEROCOCCAL INFECTION
     Dosage: 600 MG, UNK
     Route: 048
     Dates: start: 20110509, end: 20110509
  4. ZYVOX [Suspect]
     Dosage: 600 MG, 2X/DAY
     Route: 048
     Dates: start: 20110510, end: 20110510
  5. ACETAMINOPHEN [Concomitant]
     Dosage: 0.5 G, 1X/DAY
     Route: 048
     Dates: start: 20110510, end: 20110518
  6. CLONAZEPAM [Concomitant]
     Dosage: 0.5 MG, 2X/DAY
     Route: 048
     Dates: start: 20110215, end: 20110519
  7. ZYVOX [Suspect]
     Dosage: 600 MG, UNK
     Route: 048
     Dates: start: 20110511, end: 20110511
  8. ASCORBIC ACID [Concomitant]
     Dosage: 0.5 G, 1X/DAY
     Route: 042
     Dates: start: 20110408

REACTIONS (2)
  - DISSEMINATED INTRAVASCULAR COAGULATION [None]
  - PLATELET COUNT DECREASED [None]
